FAERS Safety Report 14992454 (Version 3)
Quarter: 2020Q1

REPORT INFORMATION
  Report Type: Report from Study
  Country: NL (occurrence: NL)
  Receive Date: 20180609
  Receipt Date: 20200115
  Transmission Date: 20200409
  Serious: Yes (Hospitalization)
  Sender: FDA-Public Use
  Company Number: NL-ROCHE-2134918

PATIENT

DRUGS (5)
  1. IRINOTECAN [Suspect]
     Active Substance: IRINOTECAN
     Indication: COLORECTAL CANCER
     Dosage: ON 07/MAR/2018, RECEIVED IRINOTECAN.?DATE OF MOST RECENT DOSE PRIOR TO AE ONSET: 02/MAY/2018?DATE OF
     Route: 065
     Dates: start: 20180125
  2. LEUCOVORIN [FOLINIC ACID] [Suspect]
     Active Substance: LEUCOVORIN
     Indication: COLORECTAL CANCER
     Dosage: ON 07/MAR/2018, RECEIVED LEUCOVORIN.?DATE OF MOST RECENT DOSE PRIOR TO AE ONSET: 28/JUN/2018
     Route: 065
     Dates: start: 20180125
  3. 5-FU [FLUOROURACIL] [Suspect]
     Active Substance: FLUOROURACIL
     Indication: COLORECTAL CANCER
     Dosage: ON 07/MAR/2018, RECEIVED 5-FLUOROURACIL.?DATE OF MOST RECENT DOSE PRIOR TO AE ONSET: 28/JUN/2018
     Route: 065
     Dates: start: 20180125
  4. BEVACIZUMAB. [Suspect]
     Active Substance: BEVACIZUMAB
     Indication: COLORECTAL CANCER
     Dosage: ON 07/MAR/2018, RECEIVED BEVACIZUMAB.?DATE OF MOST RECENT DOSE PRIOR TO AE ONSET: 02/MAY/2018??DATE
     Route: 065
     Dates: start: 20180125
  5. OXALIPLATIN. [Suspect]
     Active Substance: OXALIPLATIN
     Indication: COLORECTAL CANCER
     Dosage: ON 07/MAR/2018, RECEIVED OXALIPLATIN.?DATE OF MOST RECENT DOSE PRIOR TO AE ONSET: 28/JUN/2018
     Route: 065
     Dates: start: 20180125

REACTIONS (3)
  - Pulmonary embolism [Recovering/Resolving]
  - Intra-abdominal fluid collection [Recovered/Resolved]
  - Post procedural fever [Recovered/Resolved]

NARRATIVE: CASE EVENT DATE: 20180314
